FAERS Safety Report 10644019 (Version 1)
Quarter: 2014Q4

REPORT INFORMATION
  Report Type: Report from Study
  Country: BR (occurrence: BR)
  Receive Date: 20141210
  Receipt Date: 20141210
  Transmission Date: 20150529
  Serious: Yes (Other)
  Sender: FDA-Public Use
  Company Number: BR-ABBOTT-14X-020-1199893-00

PATIENT
  Age: 61 Year
  Sex: Female
  Weight: 59.5 kg

DRUGS (3)
  1. PURAN [Concomitant]
     Active Substance: LEVOTHYROXINE SODIUM
     Indication: PRODUCT USED FOR UNKNOWN INDICATION
     Route: 048
  2. RYTMONORM [Suspect]
     Active Substance: PROPAFENONE
     Indication: CARDIAC FIBRILLATION
     Route: 048
  3. RYTMONORM [Suspect]
     Active Substance: PROPAFENONE

REACTIONS (1)
  - Thrombosis [Unknown]

NARRATIVE: CASE EVENT DATE: 20140430
